FAERS Safety Report 5430521-4 (Version None)
Quarter: 2007Q3

REPORT INFORMATION
  Report Type: 
  Country: None (occurrence: None)
  Receive Date: 20070830
  Receipt Date: 20070823
  Transmission Date: 20080115
  Serious: Yes (Death, Hospitalization, Disabling)
  Sender: FDA-Public Use
  Company Number: MX-ELI_LILLY_AND_COMPANY-MX200708005223

PATIENT
  Age: 83 Year
  Sex: Male

DRUGS (3)
  1. FORTEO [Suspect]
     Indication: OSTEOPOROSIS
     Dosage: 20 UG, DAILY (1/D)
     Route: 058
     Dates: start: 20070201, end: 20070401
  2. LEUCOVORIN CALCIUM [Concomitant]
     Dosage: UNK, UNKNOWN
     Route: 065
  3. LEXAPRO [Concomitant]
     Indication: DEPRESSION
     Dosage: UNK, UNKNOWN
     Route: 065

REACTIONS (7)
  - BONE CALLUS EXCESSIVE [None]
  - DYSPNOEA [None]
  - MOVEMENT DISORDER [None]
  - PAIN [None]
  - PHLEBITIS [None]
  - PULMONARY EMBOLISM [None]
  - VARICOSE ULCERATION [None]
